FAERS Safety Report 24866197 (Version 1)
Quarter: 2025Q1

REPORT INFORMATION
  Report Type: Spontaneous
  Country: US (occurrence: US)
  Receive Date: 20250121
  Receipt Date: 20250121
  Transmission Date: 20250409
  Serious: No
  Sender: CURRAX PHARMACEUTICALS
  Company Number: US-CURRAX PHARMACEUTICALS LLC-US-2022CUR024275

PATIENT
  Age: 28 Year
  Sex: Female

DRUGS (1)
  1. CONTRAVE [Suspect]
     Active Substance: BUPROPION HYDROCHLORIDE\NALTREXONE HYDROCHLORIDE
     Indication: Product used for unknown indication
     Dosage: STRENGTH 8/90 MG, 1 PILL DAILY
     Route: 048
     Dates: start: 20221223

REACTIONS (3)
  - Musculoskeletal stiffness [Unknown]
  - Myalgia [Unknown]
  - Illness [Unknown]

NARRATIVE: CASE EVENT DATE: 20221226
